FAERS Safety Report 18788564 (Version 2)
Quarter: 2022Q3

REPORT INFORMATION
  Report Type: Spontaneous
  Country: TW (occurrence: TW)
  Receive Date: 20210126
  Receipt Date: 20220713
  Transmission Date: 20221027
  Serious: Yes (Other)
  Sender: FDA-Public Use
  Company Number: TW-GSKCCFAPAC-CASE-01126501_AE-39401

PATIENT

DRUGS (1)
  1. AVODART [Suspect]
     Active Substance: DUTASTERIDE
     Indication: Product used for unknown indication
     Dosage: UNK

REACTIONS (2)
  - Cervix carcinoma [Unknown]
  - Exposure via body fluid [Unknown]
